FAERS Safety Report 4518086-2 (Version None)
Quarter: 2004Q4

REPORT INFORMATION
  Report Type: 
  Country: None (occurrence: None)
  Receive Date: 20041203
  Receipt Date: 20041201
  Transmission Date: 20050328
  Serious: Yes (Other)
  Sender: FDA-Public Use
  Company Number: DE-GLAXOSMITHKLINE-D0045378A

PATIENT

DRUGS (1)
  1. LAMICTAL [Suspect]
     Route: 065

REACTIONS (1)
  - ATRIOVENTRICULAR BLOCK [None]
